FAERS Safety Report 9839867 (Version 1)
Quarter: 2014Q1

REPORT INFORMATION
  Report Type: Report from Study
  Country: BR (occurrence: BR)
  Receive Date: 20140124
  Receipt Date: 20140124
  Transmission Date: 20141002
  Serious: Yes (Other)
  Sender: FDA-Public Use
  Company Number: PHHY2014BR008158

PATIENT
  Sex: Female
  Weight: 68 kg

DRUGS (4)
  1. RITALIN LA [Suspect]
     Indication: ATTENTION DEFICIT/HYPERACTIVITY DISORDER
     Dosage: 1 DF, QD
     Dates: start: 201312
  2. RITALINA [Suspect]
     Indication: ATTENTION DEFICIT/HYPERACTIVITY DISORDER
     Dosage: 5 DF, DAILY
     Dates: end: 201312
  3. SERTRALINE [Suspect]
     Indication: BIPOLAR DISORDER
     Dosage: 2 DF, UNK
     Dates: end: 201312
  4. DEPAKOTE [Suspect]
     Indication: BIPOLAR DISORDER
     Dosage: 3 DF, UNK
     Dates: end: 201312

REACTIONS (8)
  - Eating disorder [Unknown]
  - Bulimia nervosa [Unknown]
  - Decreased appetite [Unknown]
  - Increased appetite [Unknown]
  - Gastritis [Unknown]
  - Abdominal discomfort [Not Recovered/Not Resolved]
  - Dyspepsia [Unknown]
  - Sedation [Unknown]
